FAERS Safety Report 5978294-0 (Version None)
Quarter: 2008Q4

REPORT INFORMATION
  Report Type: 
  Country: None (occurrence: None)
  Receive Date: 20081204
  Receipt Date: 20081201
  Transmission Date: 20090506
  Serious: Yes (Life-Threatening, Other)
  Sender: FDA-Public Use
  Company Number: NL-WYE-G02322908

PATIENT
  Age: 35 Year
  Sex: Male
  Weight: 78.2 kg

DRUGS (8)
  1. EFFEXOR XR [Suspect]
     Indication: BORDERLINE PERSONALITY DISORDER
     Route: 048
     Dates: start: 20080101, end: 20080101
  2. EFFEXOR XR [Suspect]
     Route: 048
     Dates: start: 20080101, end: 20080731
  3. EFFEXOR XR [Suspect]
     Route: 048
     Dates: start: 20080802
  4. TRAMADOL HCL [Concomitant]
     Indication: PAIN
     Dosage: MAXIMUM OF 150 MG
  5. MIDAZOLAM HCL [Concomitant]
     Indication: SLEEP DISORDER
     Dosage: 15 MG EVERY
     Route: 048
  6. RIVOTRIL [Concomitant]
     Indication: EPILEPSY
     Dosage: 2 MG EVERY
     Route: 048
  7. SEROQUEL [Concomitant]
     Indication: BORDERLINE PERSONALITY DISORDER
     Dosage: 25, 50, 75 AND 100 MG
     Route: 048
     Dates: start: 20080101
  8. NEXIUM [Concomitant]
     Indication: ABDOMINAL PAIN UPPER
     Dosage: 40 MG EVERY
     Route: 048

REACTIONS (9)
  - ANXIETY [None]
  - DRUG WITHDRAWAL SYNDROME [None]
  - ERECTILE DYSFUNCTION [None]
  - FATIGUE [None]
  - INFLUENZA LIKE ILLNESS [None]
  - INTESTINAL FUNCTIONAL DISORDER [None]
  - PANIC ATTACK [None]
  - SUICIDAL IDEATION [None]
  - TENSION [None]
